FAERS Safety Report 11735169 (Version 1)
Quarter: 2015Q4

REPORT INFORMATION
  Report Type: Spontaneous
  Country: DK (occurrence: GB)
  Receive Date: 20151113
  Receipt Date: 20151113
  Transmission Date: 20160304
  Serious: Yes (Other)
  Sender: FDA-Public Use
  Company Number: GB-FRI-1000080799

PATIENT
  Age: 26 Year
  Sex: Female
  Weight: 88.9 kg

DRUGS (4)
  1. CITALOPRAM [Suspect]
     Active Substance: CITALOPRAM HYDROBROMIDE
     Indication: DEPRESSION
     Dosage: INCREASED TO 40 MG DAILY
     Route: 048
  2. CITALOPRAM [Suspect]
     Active Substance: CITALOPRAM HYDROBROMIDE
     Dosage: REDUCED TO 20 MG DAILY
     Route: 048
     Dates: end: 201508
  3. CITALOPRAM [Suspect]
     Active Substance: CITALOPRAM HYDROBROMIDE
     Indication: ANXIETY
     Dosage: 10 MG
     Route: 048
  4. MIRENA [Concomitant]
     Active Substance: LEVONORGESTREL
     Indication: ENDOMETRIOSIS
     Route: 065

REACTIONS (6)
  - Galactorrhoea [Recovered/Resolved]
  - Condition aggravated [Unknown]
  - Abnormal weight gain [Recovered/Resolved with Sequelae]
  - Loss of libido [Recovering/Resolving]
  - Depression [Recovered/Resolved]
  - Anhedonia [Recovered/Resolved]

NARRATIVE: CASE EVENT DATE: 201409
